FAERS Safety Report 10062270 (Version 2)
Quarter: 2014Q2

REPORT INFORMATION
  Report Type: Spontaneous
  Country: BR (occurrence: BR)
  Receive Date: 20140407
  Receipt Date: 20140407
  Transmission Date: 20141212
  Serious: Yes (Other)
  Sender: FDA-Public Use
  Company Number: BR-JNJFOC-20140109952

PATIENT
  Age: 52 Year
  Sex: Female
  Weight: 62 kg

DRUGS (5)
  1. REMICADE [Suspect]
     Indication: CROHN^S DISEASE
     Route: 042
     Dates: start: 20131220, end: 20131220
  2. REMICADE [Suspect]
     Indication: CROHN^S DISEASE
     Route: 042
     Dates: start: 20131106
  3. REMICADE [Suspect]
     Indication: COLITIS
     Route: 042
     Dates: start: 20131106
  4. REMICADE [Suspect]
     Indication: COLITIS
     Route: 042
     Dates: start: 20131220, end: 20131220
  5. MESALAZINE [Concomitant]
     Indication: COLITIS
     Route: 065

REACTIONS (7)
  - Anaphylactic shock [Recovered/Resolved]
  - Infusion related reaction [Recovered/Resolved]
  - Syncope [Unknown]
  - Blood pressure decreased [Recovered/Resolved]
  - Hypersensitivity [Not Recovered/Not Resolved]
  - Heart rate increased [Not Recovered/Not Resolved]
  - Formication [Not Recovered/Not Resolved]
